FAERS Safety Report 7349425-5 (Version None)
Quarter: 2011Q1

REPORT INFORMATION
  Report Type: 
  Country: None (occurrence: None)
  Receive Date: 20110314
  Receipt Date: 20100816
  Transmission Date: 20110831
  Serious: No
  Sender: FDA-Public Use
  Company Number: US-ABBOTT-10P-163-0665293-00

PATIENT

DRUGS (4)
  1. KLONOPIN [Concomitant]
     Indication: PRODUCT USED FOR UNKNOWN INDICATION
  2. DEPAKOTE [Suspect]
     Dates: start: 20100801
  3. ABILIFY [Concomitant]
     Indication: PRODUCT USED FOR UNKNOWN INDICATION
  4. DEPAKOTE [Suspect]
     Indication: BIPOLAR DISORDER
     Dates: start: 20100701, end: 20100801

REACTIONS (1)
  - OEDEMA PERIPHERAL [None]
